FAERS Safety Report 19227508 (Version 2)
Quarter: 2021Q2

REPORT INFORMATION
  Report Type: Report from Study
  Country: FR (occurrence: FR)
  Receive Date: 20210506
  Receipt Date: 20210531
  Transmission Date: 20210717
  Serious: Yes (Hospitalization)
  Sender: FDA-Public Use
  Company Number: FR-PFIZER INC-2021452828

PATIENT
  Age: 60 Year
  Sex: Male

DRUGS (3)
  1. SARILUMAB [Suspect]
     Active Substance: SARILUMAB
     Indication: CORONAVIRUS INFECTION
     Dosage: 400 MG, QD
     Route: 058
     Dates: start: 20200412, end: 20200412
  2. ZITHROMAX [Suspect]
     Active Substance: AZITHROMYCIN DIHYDRATE
     Indication: CORONAVIRUS INFECTION
     Dosage: 250 MG, 1X/DAY (QD)
     Route: 048
     Dates: start: 20200413, end: 20200415
  3. PLAQUENIL [Suspect]
     Active Substance: HYDROXYCHLOROQUINE SULFATE
     Indication: CORONAVIRUS INFECTION
     Dosage: 600 MG, QD
     Route: 048
     Dates: start: 20200412, end: 20200417

REACTIONS (1)
  - Hepatic cytolysis [Recovered/Resolved]

NARRATIVE: CASE EVENT DATE: 20200417
